FAERS Safety Report 9241477 (Version 1)
Quarter: 2013Q1

REPORT INFORMATION
  Report Type: Spontaneous
  Country: US (occurrence: None)
  Receive Date: 20121120
  Receipt Date: 20121120
  Transmission Date: 20140127
  Serious: No
  Sender: FDA-Public Use
  Company Number: 1000038139

PATIENT
  Sex: Female

DRUGS (1)
  1. VIIBRYD [Suspect]
     Indication: DEPRESSION
     Dates: start: 20120815, end: 20120820

REACTIONS (8)
  - Agitation [None]
  - Anxiety [None]
  - Dyspnoea [None]
  - Chest discomfort [None]
  - Hyperhidrosis [None]
  - Heart rate increased [None]
  - Insomnia [None]
  - Dry mouth [None]
